FAERS Safety Report 7193094-4 (Version None)
Quarter: 2010Q4

REPORT INFORMATION
  Report Type: 
  Country: None (occurrence: None)
  Receive Date: 20101223
  Receipt Date: 20101216
  Transmission Date: 20110411
  Serious: Yes (Hospitalization, Other)
  Sender: FDA-Public Use
  Company Number: CA-MERCK-1012USA02767

PATIENT
  Age: 72 Year
  Sex: Male
  Weight: 64 kg

DRUGS (5)
  1. ZETIA [Suspect]
     Route: 048
  2. ASPIRIN [Concomitant]
     Route: 065
  3. ATACAND [Concomitant]
     Route: 065
  4. NOVO RABEPRAZOLE [Concomitant]
     Route: 065
  5. CLARITHROMYCIN [Concomitant]
     Route: 065

REACTIONS (4)
  - CHEST PAIN [None]
  - DIZZINESS [None]
  - DYSPNOEA [None]
  - GASTROOESOPHAGEAL REFLUX DISEASE [None]
